FAERS Safety Report 4920033-6 (Version None)
Quarter: 2006Q1

REPORT INFORMATION
  Report Type: 
  Country: None (occurrence: None)
  Receive Date: 20060217
  Receipt Date: 20060206
  Transmission Date: 20060701
  Serious: Yes (Hospitalization)
  Sender: FDA-Public Use
  Company Number: US016822

PATIENT
  Age: 51 Year
  Sex: Male

DRUGS (2)
  1. MODAFINIL [Suspect]
     Indication: MULTIPLE SCLEROSIS
     Dates: start: 20050101
  2. COPAXONE [Concomitant]

REACTIONS (1)
  - MYOCARDIAL INFARCTION [None]
